FAERS Safety Report 8946365 (Version 1)
Quarter: 2012Q4

REPORT INFORMATION
  Report Type: 
  Country: US (occurrence: US)
  Receive Date: 20121204
  Receipt Date: 20121204
  Transmission Date: 20130627
  Serious: No
  Sender: FDA-Public Use
  Company Number: US-AMGEN-USASP2012075625

PATIENT
  Age: 52 Year
  Sex: Female

DRUGS (2)
  1. ENBREL [Suspect]
     Indication: RHEUMATOID ARTHRITIS
     Dosage: 50 mg, qwk
     Dates: start: 2012
  2. METHOTREXATE [Concomitant]
     Dosage: 8 ml, qwk
     Dates: start: 2011

REACTIONS (6)
  - Pain in extremity [Not Recovered/Not Resolved]
  - Oropharyngeal pain [Recovered/Resolved]
  - Ear congestion [Recovered/Resolved]
  - Chest pain [Recovered/Resolved]
  - Injection site pain [Not Recovered/Not Resolved]
  - Nasopharyngitis [Recovered/Resolved]
